FAERS Safety Report 7610304-7 (Version None)
Quarter: 2011Q3

REPORT INFORMATION
  Report Type: 
  Country: None (occurrence: None)
  Receive Date: 20110706
  Receipt Date: 20110623
  Transmission Date: 20111222
  Serious: Yes (Death)
  Sender: FDA-Public Use
  Company Number: AUR-APL-2011-03668

PATIENT
  Age: 54 Year

DRUGS (2)
  1. ACETAMINOPHEN [Suspect]
     Indication: PRODUCT USED FOR UNKNOWN INDICATION
  2. CITALOPRAM HYDROBROMIDE [Suspect]
     Indication: PRODUCT USED FOR UNKNOWN INDICATION

REACTIONS (7)
  - ARRHYTHMIA [None]
  - PULMONARY CONGESTION [None]
  - HEPATITIS [None]
  - OVERDOSE [None]
  - TOXICITY TO VARIOUS AGENTS [None]
  - HEPATIC CIRRHOSIS [None]
  - RESPIRATORY DEPRESSION [None]
